FAERS Safety Report 22815501 (Version 3)
Quarter: 2024Q1

REPORT INFORMATION
  Report Type: Spontaneous
  Country: CN (occurrence: CN)
  Receive Date: 20230811
  Receipt Date: 20240223
  Transmission Date: 20240410
  Serious: Yes (Other)
  Sender: FDA-Public Use
  Company Number: CN-SUN PHARMACEUTICAL INDUSTRIES LTD-2023R1-403930

PATIENT
  Sex: Male
  Weight: 2.5 kg

DRUGS (2)
  1. DIGOXIN [Suspect]
     Active Substance: DIGOXIN
     Indication: Atrial flutter
     Dosage: UNK
     Route: 064
  2. SOTALOL [Suspect]
     Active Substance: SOTALOL
     Indication: Atrial flutter
     Dosage: UNK
     Route: 064

REACTIONS (4)
  - Drug ineffective [Unknown]
  - Premature baby [Unknown]
  - Atrial septal defect [Unknown]
  - Cardiac failure [Unknown]
